FAERS Safety Report 23988187 (Version 16)
Quarter: 2025Q3

REPORT INFORMATION
  Report Type: Spontaneous
  Country: EU (occurrence: EU)
  Receive Date: 20240619
  Receipt Date: 20250805
  Transmission Date: 20251021
  Serious: Yes (Hospitalization, Other)
  Sender: AUROBINDO
  Company Number: EU-PFIZER INC-PV202400073118

PATIENT
  Age: 54 Year
  Sex: Female
  Weight: 71 kg

DRUGS (12)
  1. LETROZOLE [Suspect]
     Active Substance: LETROZOLE
     Indication: Breast cancer
     Dosage: 2.5 MILLIGRAM, ONCE A DAY (.5 MILLIGRAM, QD (DAILY) (CUMULATIVE DOSE TO FIRST REACTION: 98 MG) )
     Route: 048
     Dates: start: 20240221, end: 20240430
  2. LETROZOLE [Suspect]
     Active Substance: LETROZOLE
     Indication: Breast cancer female
  3. ADALIMUMAB [Suspect]
     Active Substance: ADALIMUMAB
     Indication: Product used for unknown indication
     Route: 058
  4. ADALIMUMAB [Suspect]
     Active Substance: ADALIMUMAB
     Route: 058
  5. ADALIMUMAB [Suspect]
     Active Substance: ADALIMUMAB
     Route: 058
  6. PALBOCICLIB [Suspect]
     Active Substance: PALBOCICLIB
     Indication: Breast cancer
     Route: 048
     Dates: start: 20240221, end: 20240423
  7. PALBOCICLIB [Suspect]
     Active Substance: PALBOCICLIB
     Indication: Breast cancer female
     Route: 048
     Dates: start: 20240221, end: 20240423
  8. PALBOCICLIB [Suspect]
     Active Substance: PALBOCICLIB
     Route: 065
  9. SECUKINUMAB [Suspect]
     Active Substance: SECUKINUMAB
     Indication: Product used for unknown indication
     Route: 058
  10. SECUKINUMAB [Suspect]
     Active Substance: SECUKINUMAB
     Route: 058
  11. SECUKINUMAB [Suspect]
     Active Substance: SECUKINUMAB
     Route: 058
  12. EDOXABAN TOSYLATE [Concomitant]
     Active Substance: EDOXABAN TOSYLATE
     Indication: Product used for unknown indication
     Route: 048
     Dates: start: 202401

REACTIONS (6)
  - Anaemia [Recovered/Resolved]
  - General physical health deterioration [Recovered/Resolved]
  - Systemic lupus erythematosus [Unknown]
  - White blood cell count decreased [Unknown]
  - Metastases to bone [Unknown]
  - Neoplasm progression [Unknown]

NARRATIVE: CASE EVENT DATE: 20240330
